FAERS Safety Report 19977021 (Version 2)
Quarter: 2021Q4

REPORT INFORMATION
  Report Type: Spontaneous
  Country: US (occurrence: US)
  Receive Date: 20211020
  Receipt Date: 20211020
  Transmission Date: 20220303
  Serious: No
  Sender: FDA-Public Use
  Company Number: US-ALLERGAN-2128274US

PATIENT
  Sex: Female
  Weight: 56.7 kg

DRUGS (24)
  1. LINZESS [Suspect]
     Active Substance: LINACLOTIDE
     Indication: Parkinson^s disease
     Dosage: 145 ?G
  2. LINZESS [Suspect]
     Active Substance: LINACLOTIDE
     Indication: Parkinson^s disease
     Dosage: 290 ?G
  3. GOCOVRI [Suspect]
     Active Substance: AMANTADINE
     Indication: Dyskinesia
     Dosage: 137 MG, QHS
     Route: 048
     Dates: start: 20180711
  4. CLONAZEPAM [Concomitant]
     Active Substance: CLONAZEPAM
  5. GABAPENTIN [Concomitant]
     Active Substance: GABAPENTIN
  6. PAXIL [Concomitant]
     Active Substance: PAROXETINE HYDROCHLORIDE
  7. REQUIP XL [Concomitant]
     Active Substance: ROPINIROLE HYDROCHLORIDE
  8. SINEMET CR [Concomitant]
     Active Substance: CARBIDOPA\LEVODOPA
     Dosage: UNK
  9. TYLENOL [Concomitant]
     Active Substance: ACETAMINOPHEN
  10. SINEMET [Concomitant]
     Active Substance: CARBIDOPA\LEVODOPA
  11. FOLIC ACID [Concomitant]
     Active Substance: FOLIC ACID
  12. SUPER ENZYMES FOR DIGESTION [Concomitant]
  13. BIOTIN [Concomitant]
     Active Substance: BIOTIN
  14. STOOL SOFTENER (DOCUSATE) [Concomitant]
     Active Substance: DOCUSATE
  15. POTASSIUM [Concomitant]
     Active Substance: POTASSIUM
  16. VITAMIN D3 [Concomitant]
     Active Substance: CHOLECALCIFEROL
  17. SUPER B COMPLEX [VITAMIN B COMPLEX] [Concomitant]
  18. VITAMINS NOS [Concomitant]
     Active Substance: VITAMINS
  19. VITAMIN C [Concomitant]
     Active Substance: ASCORBIC ACID
  20. ZINC [Concomitant]
     Active Substance: ZINC
  21. LORAZEPAM [Concomitant]
     Active Substance: LORAZEPAM
  22. PEPPERMINT [MENTHA X PIPERITA] [Concomitant]
  23. PROBIOTICS NOS [Concomitant]
     Active Substance: PROBIOTICS NOS
  24. IB SOOTHE R [Concomitant]

REACTIONS (16)
  - Weight decreased [Recovering/Resolving]
  - Functional gastrointestinal disorder [Not Recovered/Not Resolved]
  - Pelvic floor dysfunction [Not Recovered/Not Resolved]
  - Gastrointestinal sounds abnormal [Not Recovered/Not Resolved]
  - Hypophagia [Not Recovered/Not Resolved]
  - Lacrimation increased [Not Recovered/Not Resolved]
  - Diplopia [Not Recovered/Not Resolved]
  - Ocular hyperaemia [Not Recovered/Not Resolved]
  - Eye colour change [Not Recovered/Not Resolved]
  - Lid sulcus deepened [Not Recovered/Not Resolved]
  - Anxiety [Not Recovered/Not Resolved]
  - Off label use [Unknown]
  - Dry eye [Not Recovered/Not Resolved]
  - Dyspepsia [Not Recovered/Not Resolved]
  - Abdominal distension [Not Recovered/Not Resolved]
  - Constipation [Not Recovered/Not Resolved]

NARRATIVE: CASE EVENT DATE: 20210101
